FAERS Safety Report 8765210 (Version 2)
Quarter: 2012Q4

REPORT INFORMATION
  Report Type: 
  Country: US (occurrence: US)
  Receive Date: 20120903
  Receipt Date: 20121011
  Transmission Date: 20130627
  Serious: No
  Sender: FDA-Public Use
  Company Number: US-PFIZER INC-2012215239

PATIENT
  Age: 64 Year
  Sex: Female
  Weight: 124 kg

DRUGS (6)
  1. CHANTIX [Suspect]
     Indication: SMOKING CESSATION THERAPY
     Dosage: UNK
     Route: 048
  2. CHANTIX [Suspect]
     Dosage: splitting the 1 mg tablet into half daily
     Route: 048
     Dates: start: 201208, end: 201208
  3. CHANTIX [Suspect]
     Dosage: splitting the 1 mg tablet into half two times a day
     Route: 048
     Dates: start: 201208, end: 201208
  4. CHANTIX [Suspect]
     Dosage: 1 mg, 2x/day
     Route: 048
     Dates: start: 201208
  5. METFORMIN HCL [Suspect]
     Indication: BLOOD GLUCOSE INCREASED
     Dosage: 500 mg, daily
  6. GLYBURIDE [Suspect]
     Indication: BLOOD GLUCOSE INCREASED
     Dosage: 1.25 mg, daily

REACTIONS (1)
  - Blood glucose increased [Not Recovered/Not Resolved]
